FAERS Safety Report 11141699 (Version 1)
Quarter: 2015Q2

REPORT INFORMATION
  Report Type: Spontaneous
  Country: UA (occurrence: UA)
  Receive Date: 20150527
  Receipt Date: 20150527
  Transmission Date: 20150821
  Serious: Yes (Life-Threatening)
  Sender: FDA-Public Use
  Company Number: UA-PFIZER INC-2015178358

PATIENT
  Age: 27 Year
  Sex: Male

DRUGS (2)
  1. ZELDOX [Suspect]
     Active Substance: ZIPRASIDONE
     Indication: SCHIZOPHRENIA
     Dosage: 20 MG, SINGLE
     Route: 030
     Dates: start: 20150325, end: 20150325
  2. ZELDOX [Suspect]
     Active Substance: ZIPRASIDONE
     Indication: AGITATION

REACTIONS (3)
  - Dystonia [Unknown]
  - Tremor [Unknown]
  - Apnoea [Unknown]

NARRATIVE: CASE EVENT DATE: 20150325
